FAERS Safety Report 14046288 (Version 2)
Quarter: 2017Q4

REPORT INFORMATION
  Report Type: Spontaneous
  Country: US (occurrence: US)
  Receive Date: 20171005
  Receipt Date: 20171019
  Transmission Date: 20180321
  Serious: Yes (Death, Other)
  Sender: FDA-Public Use
  Company Number: US-009507513-1709USA014535

PATIENT
  Age: 47 Year
  Sex: Female

DRUGS (1)
  1. INTRON A [Suspect]
     Active Substance: INTERFERON ALFA-2B
     Indication: MENINGIOMA BENIGN
     Dosage: STRENGTH: 18MMU/UL; 16.5 MMU, Q3W
     Route: 058
     Dates: start: 20170816, end: 20170901

REACTIONS (2)
  - Product use in unapproved indication [Unknown]
  - Death [Fatal]

NARRATIVE: CASE EVENT DATE: 20170816
